FAERS Safety Report 8369079-9 (Version None)
Quarter: 2012Q2

REPORT INFORMATION
  Report Type: 
  Country: None (occurrence: None)
  Receive Date: 20120516
  Receipt Date: 20120516
  Transmission Date: 20120825
  Serious: Yes (Other)
  Sender: FDA-Public Use
  Company Number: None

PATIENT
  Age: 3 Month
  Sex: Female
  Weight: 4.9896 kg

DRUGS (8)
  1. PRILOSEC [Concomitant]
  2. SIMETHICONE DROPS [Concomitant]
  3. D-VI-SOL [Concomitant]
  4. GRIPE WATER BY LITTLE REMEDIES' [Concomitant]
  5. COLIC CALM [Concomitant]
  6. ABCDOPHILUS [Concomitant]
  7. ZANTAC [Concomitant]
  8. PREVACID [Suspect]
     Indication: GASTROOESOPHAGEAL REFLUX DISEASE
     Dosage: 15 MG 2 TIMES/DAY PO
     Route: 048
     Dates: start: 20120412, end: 20120416

REACTIONS (2)
  - RASH ERYTHEMATOUS [None]
  - EYE SWELLING [None]
